FAERS Safety Report 4738707-9 (Version None)
Quarter: 2005Q3

REPORT INFORMATION
  Report Type: 
  Country: None (occurrence: None)
  Receive Date: 20050803
  Receipt Date: 20050725
  Transmission Date: 20060218
  Serious: Yes (Other)
  Sender: FDA-Public Use
  Company Number: 2005041680

PATIENT
  Age: 45 Year
  Sex: Female
  Weight: 70 kg

DRUGS (2)
  1. LYRICA [Suspect]
     Indication: PARAESTHESIA
     Dosage: 300 MG (1 IN 1 D), ORAL
     Route: 048
     Dates: start: 20041223, end: 20050310
  2. CORTISONE ACETATE [Concomitant]

REACTIONS (1)
  - HEPATIC NECROSIS [None]
